FAERS Safety Report 12562134 (Version 2)
Quarter: 2016Q3

REPORT INFORMATION
  Report Type: Spontaneous
  Country: GB (occurrence: GB)
  Receive Date: 20160715
  Receipt Date: 20160727
  Transmission Date: 20161109
  Serious: Yes (Hospitalization)
  Sender: FDA-Public Use
  Company Number: GB-MALLINCKRODT-T201603025

PATIENT
  Age: 38 Year
  Sex: Female
  Weight: 72 kg

DRUGS (28)
  1. MOMETASONE FUROATE. [Concomitant]
     Active Substance: MOMETASONE FUROATE
     Dosage: 1 APPLICATION EVERY EVENING
     Route: 061
  2. UVADEX [Suspect]
     Active Substance: METHOXSALEN
     Indication: GRAFT VERSUS HOST DISEASE IN GASTROINTESTINAL TRACT
     Dosage: UVADEX 3.6 ML
     Dates: start: 20160415, end: 20160415
  3. DOMPERIDONE [Concomitant]
     Active Substance: DOMPERIDONE
     Dosage: 10MG EVERY 8 HOURS AS NEEDED
     Route: 048
  4. PHENOXYMETHYLPENICILLIN [Concomitant]
     Active Substance: PENICILLIN V
     Dosage: 500MG TWICE A DAY
     Route: 048
  5. ZOPICLONE [Concomitant]
     Active Substance: ZOPICLONE
     Dosage: 7.5 MG EVERY NIGHT  AS NEEDED
     Route: 048
  6. ACICLOVIR [Concomitant]
     Active Substance: ACYCLOVIR
     Dosage: 400 MG TWICE A DAY
     Route: 048
  7. HEPARIN [Suspect]
     Active Substance: HEPARIN SODIUM
     Indication: ANTICOAGULANT THERAPY
     Dosage: UNK
     Route: 065
     Dates: start: 20160414, end: 20160414
  8. CLOBETASONE BUTYRATE [Concomitant]
     Active Substance: CLOBETASONE BUTYRATE
     Dosage: 0.05% CREAM TWICE A DAY
     Route: 061
  9. CREON [Concomitant]
     Active Substance: PANCRELIPASE AMYLASE\PANCRELIPASE LIPASE\PANCRELIPASE PROTEASE
     Dosage: 1 CAPSULE 3 TIMES A DAY BEFORE MEALS
     Route: 048
  10. NORTRIPTYLINE [Concomitant]
     Active Substance: NORTRIPTYLINE
     Dosage: 50MG EVERY NIGHT
     Route: 048
  11. OMEPRAZOLE. [Concomitant]
     Active Substance: OMEPRAZOLE
     Dosage: 40 MG EVERY MORNING
     Route: 048
  12. BUDESONIDE. [Concomitant]
     Active Substance: BUDESONIDE
     Dosage: 3 MG THREE TIMES A DAY
     Route: 048
  13. POSACONAZOLE [Concomitant]
     Active Substance: POSACONAZOLE
     Dosage: 300 MG EVERY MORNING
     Route: 048
  14. NORETHISTERONE [Concomitant]
     Active Substance: NORETHINDRONE
     Dosage: 5MG 3 TIMES A DAY
     Route: 048
  15. TEMAZEPAM. [Concomitant]
     Active Substance: TEMAZEPAM
     Dosage: 10 MG EVERY NIGHT AT 22:00 IF NEEDED
     Route: 048
  16. UVADEX [Suspect]
     Active Substance: METHOXSALEN
     Indication: ACUTE GRAFT VERSUS HOST DISEASE IN SKIN
     Dosage: UNK
     Dates: start: 20160414, end: 20160414
  17. HEPARIN [Suspect]
     Active Substance: HEPARIN SODIUM
     Dosage: 10,000U IN 1000 ML 0.9% SALINE
     Dates: start: 20160415, end: 20160415
  18. CODEINE PHOSPHATE [Concomitant]
     Active Substance: CODEINE PHOSPHATE
     Dosage: 30 MG EVERY 6 HOURS AS NEEDED
     Route: 048
  19. LOPERAMIDE [Concomitant]
     Active Substance: LOPERAMIDE
     Dosage: 2MG AS OFTEN AS NECESSARY
     Route: 048
  20. DERMOL [Concomitant]
     Active Substance: BENZALKONIUM CHLORIDE\CHLORHEXIDINE HYDROCHLORIDE\ISOPROPYL MYRISTATE\PARAFFIN
     Dosage: 1 APPLICATION AS OFTEN AS NECESSARY
     Route: 061
  21. HUMULIN I [Concomitant]
     Active Substance: INSULIN HUMAN
     Dosage: 15 UNITS PRE-BREAKFAST AND 8 UNITS A BEDTIME
     Route: 058
  22. PARACETAMOL [Concomitant]
     Active Substance: ACETAMINOPHEN
     Dosage: 1000MG EVERY 4 TO 6 HOURS AS NEEDED
     Route: 048
  23. CETRABEN [Concomitant]
     Active Substance: PARAFFIN
     Dosage: APPLY EVERY MORNING TO AFFECTED AREAS
     Route: 061
  24. FOLIC ACID. [Concomitant]
     Active Substance: FOLIC ACID
     Dosage: 5 MG
     Route: 048
  25. NYSTATIN. [Concomitant]
     Active Substance: NYSTATIN
     Dosage: 1ML FOUR TIMES A DAY
     Route: 048
  26. CHLORHEXIDINE GLUCONATE. [Concomitant]
     Active Substance: CHLORHEXIDINE GLUCONATE
     Dosage: 0.2 % MOUTHWASH 10ML 4 TIMES A DAY
  27. PREDNISOLONE. [Concomitant]
     Active Substance: PREDNISOLONE
     Dosage: 70 MG EVERY MORNING
     Route: 048
  28. ONDANSETRON [Concomitant]
     Active Substance: ONDANSETRON
     Dosage: 4 MGEVERY 12 HOURS, AS NEEDED
     Route: 048

REACTIONS (5)
  - Off label use [Unknown]
  - Haematoma infection [Unknown]
  - Cellulitis [Unknown]
  - Vasculitis [Unknown]
  - Disease progression [Unknown]

NARRATIVE: CASE EVENT DATE: 20160415
